FAERS Safety Report 17197752 (Version 1)
Quarter: 2019Q4

REPORT INFORMATION
  Report Type: Spontaneous
  Country: MX (occurrence: MX)
  Receive Date: 20191224
  Receipt Date: 20191224
  Transmission Date: 20200122
  Serious: Yes (Other)
  Sender: FDA-Public Use
  Company Number: MX-SYNEX-T201908997

PATIENT
  Age: 5 Day
  Sex: Male

DRUGS (2)
  1. INOMAX [Suspect]
     Active Substance: NITRIC OXIDE
     Indication: RESPIRATORY FAILURE
     Dosage: UNK
     Route: 065
     Dates: start: 20191209, end: 20191214
  2. INOMAX [Suspect]
     Active Substance: NITRIC OXIDE
     Indication: MECONIUM ASPIRATION SYNDROME
     Dosage: UNK
     Route: 065
     Dates: start: 20191216

REACTIONS (1)
  - Oxygen saturation decreased [Recovering/Resolving]

NARRATIVE: CASE EVENT DATE: 20191214
